FAERS Safety Report 7812742-6 (Version None)
Quarter: 2011Q4

REPORT INFORMATION
  Report Type: 
  Country: None (occurrence: None)
  Receive Date: 20111013
  Receipt Date: 20111011
  Transmission Date: 20120403
  Serious: Yes (Death, Hospitalization)
  Sender: FDA-Public Use
  Company Number: US-ACTELION-A-US2011-54913

PATIENT

DRUGS (11)
  1. VANCOMYCIN HCL [Concomitant]
  2. CEFTAZIDIME [Concomitant]
  3. MIDAZOLAM HCL [Concomitant]
  4. MORPHINE [Concomitant]
  5. ASPIRIN [Concomitant]
  6. NITRIC OXIDE [Concomitant]
  7. DIGOXIN [Concomitant]
  8. LASIX [Concomitant]
  9. TYLENOL-500 [Concomitant]
  10. TRACLEER [Suspect]
     Indication: PULMONARY HYPERTENSION
     Dosage: 2 MG/KG, BID
     Route: 048
     Dates: start: 20110923
  11. SILDENAFIL CITRATE [Concomitant]

REACTIONS (3)
  - PLATELET COUNT DECREASED [None]
  - PULMONARY ARTERIAL HYPERTENSION [None]
  - DISEASE PROGRESSION [None]
